FAERS Safety Report 4522440-2 (Version None)
Quarter: 2004Q4

REPORT INFORMATION
  Report Type: 
  Country: None (occurrence: None)
  Receive Date: 20041207
  Receipt Date: 20041122
  Transmission Date: 20050328
  Serious: No
  Sender: FDA-Public Use
  Company Number: 2004AC00874

PATIENT
  Age: 72 Year
  Sex: Male

DRUGS (1)
  1. ZESTRIL [Suspect]
     Indication: HYPERTENSION

REACTIONS (5)
  - EOSINOPHIL COUNT INCREASED [None]
  - IATROGENIC INJURY [None]
  - PITYRIASIS ROSEA [None]
  - PRURITUS [None]
  - THERAPY NON-RESPONDER [None]
